FAERS Safety Report 16944129 (Version 2)
Quarter: 2019Q4

REPORT INFORMATION
  Report Type: Spontaneous
  Country: DE (occurrence: DE)
  Receive Date: 20191022
  Receipt Date: 20191112
  Transmission Date: 20200122
  Serious: No
  Sender: FDA-Public Use
  Company Number: DE-BEH-2019108307

PATIENT
  Sex: Female

DRUGS (2)
  1. HIZENTRA [Suspect]
     Active Substance: HUMAN IMMUNOGLOBULIN G
     Indication: MYASTHENIA GRAVIS
     Dosage: 50 MILLILITER, BIW
     Route: 058
     Dates: start: 20191015
  2. TELMISARTAN. [Concomitant]
     Active Substance: TELMISARTAN
     Indication: HYPERTENSION
     Route: 048

REACTIONS (7)
  - No adverse event [Unknown]
  - Injection site erythema [Unknown]
  - Off label use [Unknown]
  - Paraesthesia oral [Unknown]
  - Injection site pruritus [Unknown]
  - Hypertension [Not Recovered/Not Resolved]
  - Dizziness [Unknown]

NARRATIVE: CASE EVENT DATE: 20191015
